FAERS Safety Report 8530776-3 (Version None)
Quarter: 2012Q3

REPORT INFORMATION
  Report Type: 
  Country: None (occurrence: None)
  Receive Date: 20120723
  Receipt Date: 20120719
  Transmission Date: 20120928
  Serious: Yes (Other)
  Sender: FDA-Public Use
  Company Number: PHEH2012US014188

PATIENT
  Sex: Female

DRUGS (4)
  1. NORVASC [Concomitant]
     Indication: BLOOD PRESSURE
     Dosage: 10 MG, QD
     Route: 048
  2. ATENOLOL [Concomitant]
     Indication: BLOOD PRESSURE
     Dosage: 100 MG, QD
     Route: 048
  3. SIMVASTATIN [Concomitant]
     Indication: BLOOD CHOLESTEROL
     Dosage: 10 MG, QD
     Route: 048
  4. DIOVAN [Suspect]
     Indication: BLOOD PRESSURE
     Dosage: 320 MG, QD
     Route: 048

REACTIONS (1)
  - COELIAC DISEASE [None]
